FAERS Safety Report 18749684 (Version 1)
Quarter: 2021Q1

REPORT INFORMATION
  Report Type: Report from Study
  Country: CA (occurrence: CA)
  Receive Date: 20210117
  Receipt Date: 20210117
  Transmission Date: 20210419
  Serious: Yes (Other)
  Sender: FDA-Public Use
  Company Number: CA-TEVA-2021-CA-1868291

PATIENT
  Age: 36 Year
  Sex: Female

DRUGS (6)
  1. FOLIC ACID. [Concomitant]
     Active Substance: FOLIC ACID
  2. VITAMIN D [Concomitant]
     Active Substance: VITAMIN D NOS
  3. COPAXONE [Suspect]
     Active Substance: GLATIRAMER ACETATE
     Indication: MULTIPLE SCLEROSIS
     Dates: start: 20181029
  4. CLARITIN AS NEEDED (PRN) [Concomitant]
  5. SEROPHENE [Concomitant]
     Active Substance: CLOMIPHENE CITRATE
  6. MATERNA [Concomitant]
     Active Substance: MINERALS\VITAMINS

REACTIONS (6)
  - Swelling face [Unknown]
  - Cough [Unknown]
  - Erythema [Unknown]
  - Lung disorder [Unknown]
  - Dyspnoea [Unknown]
  - Hot flush [Unknown]
